FAERS Safety Report 5114716-5 (Version None)
Quarter: 2006Q3

REPORT INFORMATION
  Report Type: 
  Country: None (occurrence: None)
  Receive Date: 20060922
  Receipt Date: 20060922
  Transmission Date: 20061208
  Serious: Yes (Death, Life-Threatening, Hospitalization, Disabling, Other)
  Sender: FDA-Public Use
  Company Number: None

PATIENT
  Age: 66 Year
  Sex: Male
  Weight: 99.7913 kg

DRUGS (5)
  1. AMIODARONE HCL [Suspect]
     Indication: ARRHYTHMIA
     Dosage: 200MG?   DAILY   PO
     Route: 048
     Dates: start: 20030218, end: 20050218
  2. AMIODARONE HCL [Suspect]
     Indication: ATRIAL FIBRILLATION
     Dosage: 200MG?   DAILY   PO
     Route: 048
     Dates: start: 20030218, end: 20050218
  3. CARDIAC/BLOOD PRESSURE MEDICATIONS [Concomitant]
  4. ANTIDEPRESSANT [Concomitant]
  5. SEVERAL MEDICATIONS USED TO TREAT MRSA [Concomitant]

REACTIONS (19)
  - AFFECTIVE DISORDER [None]
  - ANGINA PECTORIS [None]
  - BLOOD PRESSURE IMMEASURABLE [None]
  - CARDIAC ARREST [None]
  - CARDIAC FAILURE CONGESTIVE [None]
  - COLLAPSE OF LUNG [None]
  - DIALYSIS [None]
  - INTERSTITIAL LUNG DISEASE [None]
  - OCULAR ICTERUS [None]
  - OEDEMA [None]
  - PALPITATIONS [None]
  - PNEUMONIA [None]
  - PRURITUS [None]
  - PULMONARY TOXICITY [None]
  - RASH [None]
  - RENAL FAILURE [None]
  - SLEEP DISORDER [None]
  - STAPHYLOCOCCAL INFECTION [None]
  - THROAT IRRITATION [None]
